FAERS Safety Report 6094841-5 (Version None)
Quarter: 2009Q1

REPORT INFORMATION
  Report Type: 
  Country: None (occurrence: None)
  Receive Date: 20090227
  Receipt Date: 20090218
  Transmission Date: 20090719
  Serious: Yes (Other)
  Sender: FDA-Public Use
  Company Number: JP-JNJFOC-20090205371

PATIENT
  Age: 64 Year
  Sex: Male

DRUGS (1)
  1. FINIBAX [Suspect]
     Indication: PNEUMONIA BACTERIAL
     Route: 041

REACTIONS (1)
  - INTERSTITIAL LUNG DISEASE [None]
